FAERS Safety Report 5322936-X (Version None)
Quarter: 2007Q2

REPORT INFORMATION
  Report Type: 
  Country: None (occurrence: None)
  Receive Date: 20070511
  Receipt Date: 20070503
  Transmission Date: 20071010
  Serious: Yes (Hospitalization)
  Sender: FDA-Public Use
  Company Number: FR-MERCK-0705FRA00010

PATIENT
  Age: 34 Year
  Sex: Male
  Weight: 49 kg

DRUGS (17)
  1. CANCIDAS [Suspect]
     Indication: OESOPHAGEAL CANDIDIASIS
     Route: 042
     Dates: start: 20060101, end: 20060101
  2. CANCIDAS [Suspect]
     Route: 042
     Dates: start: 20060101, end: 20060101
  3. CANCIDAS [Suspect]
     Indication: CANDIDIASIS
     Route: 042
     Dates: start: 20060101, end: 20060101
  4. CANCIDAS [Suspect]
     Route: 042
     Dates: start: 20060101, end: 20060101
  5. RIFABUTIN [Concomitant]
     Indication: MYCOBACTERIUM AVIUM COMPLEX INFECTION
     Route: 048
     Dates: start: 20060101
  6. ETHAMBUTOL HYDROCHLORIDE [Concomitant]
     Indication: MYCOBACTERIUM AVIUM COMPLEX INFECTION
     Route: 048
     Dates: start: 20060101
  7. CLARITHROMYCIN [Concomitant]
     Indication: MYCOBACTERIUM AVIUM COMPLEX INFECTION
     Route: 048
     Dates: start: 20060101
  8. RITONAVIR [Concomitant]
     Indication: ACQUIRED IMMUNODEFICIENCY SYNDROME
     Route: 048
     Dates: start: 20060101
  9. FOSAMPRENAVIR CALCIUM [Concomitant]
     Indication: ACQUIRED IMMUNODEFICIENCY SYNDROME
     Route: 048
     Dates: start: 20060101
  10. ABACAVIR SULFATE [Concomitant]
     Indication: ACQUIRED IMMUNODEFICIENCY SYNDROME
     Route: 048
     Dates: start: 20060101
  11. TENOFOVIR [Concomitant]
     Indication: ACQUIRED IMMUNODEFICIENCY SYNDROME
     Route: 048
     Dates: start: 20060101
  12. VALACYCLOVIR HYDROCHLORIDE [Concomitant]
     Indication: HERPES ZOSTER
     Route: 048
     Dates: start: 20060101
  13. GABAPENTIN [Concomitant]
     Indication: POST HERPETIC NEURALGIA
     Route: 048
     Dates: start: 20060101
  14. CLONAZEPAM [Concomitant]
     Indication: POST HERPETIC NEURALGIA
     Route: 048
     Dates: start: 20060101
  15. SULFAMETHOXAZOLE AND TRIMETHOPRIM [Concomitant]
     Indication: PROPHYLAXIS
     Route: 048
  16. AMPHOTERICIN B AND L-(ALPHA)-DIMYRISTOYLPHOSPHATIDYLCHOLINE AND L-(ALP [Concomitant]
     Indication: OESOPHAGEAL CANDIDIASIS
     Route: 051
     Dates: start: 20060101, end: 20060101
  17. AMPHOTERICIN B AND L-(ALPHA)-DIMYRISTOYLPHOSPHATIDYLCHOLINE AND L-(ALP [Concomitant]
     Indication: CANDIDIASIS
     Route: 051
     Dates: start: 20060101, end: 20060101

REACTIONS (1)
  - NO THERAPEUTIC RESPONSE [None]
